FAERS Safety Report 6539635-9 (Version None)
Quarter: 2010Q1

REPORT INFORMATION
  Report Type: 
  Country: None (occurrence: None)
  Receive Date: 20100115
  Receipt Date: 20100113
  Transmission Date: 20100710
  Serious: Yes (Other)
  Sender: FDA-Public Use
  Company Number: US-BRISTOL-MYERS SQUIBB COMPANY-14841472

PATIENT
  Age: 1 Decade
  Sex: Female

DRUGS (2)
  1. COUMADIN [Suspect]
  2. LOVENOX [Suspect]

REACTIONS (11)
  - ABDOMINAL PAIN UPPER [None]
  - ABDOMINAL SYMPTOM [None]
  - BURNING SENSATION [None]
  - CHEST PAIN [None]
  - DYSGEUSIA [None]
  - FEELING HOT [None]
  - HEADACHE [None]
  - HEART RATE INCREASED [None]
  - HYPERTENSION [None]
  - PARAESTHESIA [None]
  - UPPER RESPIRATORY TRACT CONGESTION [None]
